FAERS Safety Report 10601529 (Version 7)
Quarter: 2015Q1

REPORT INFORMATION
  Report Type: Spontaneous
  Country: US (occurrence: US)
  Receive Date: 20141124
  Receipt Date: 20150217
  Transmission Date: 20150720
  Serious: Yes (Hospitalization)
  Sender: FDA-Public Use
  Company Number: US-SA-2014SA093418

PATIENT
  Age: 70 Year
  Sex: Male
  Weight: 100 kg

DRUGS (17)
  1. PROSCAR [Concomitant]
     Active Substance: FINASTERIDE
     Dosage: STRENGTH: 5 MG
     Route: 048
  2. PLAVIX [Suspect]
     Active Substance: CLOPIDOGREL BISULFATE
     Indication: ANTICOAGULANT THERAPY
     Route: 048
     Dates: start: 200410
  3. ATENOLOL. [Concomitant]
     Active Substance: ATENOLOL
     Dosage: STRENGTH: 5 MG
     Route: 048
     Dates: end: 20070618
  4. ASPIRIN. [Concomitant]
     Active Substance: ASPIRIN
     Route: 048
     Dates: end: 20070618
  5. LIPITOR [Concomitant]
     Active Substance: ATORVASTATIN CALCIUM
     Route: 048
     Dates: end: 20070617
  6. BISACODYL. [Concomitant]
     Active Substance: BISACODYL
     Dosage: STRENGTH: 5 MG EC
  7. PROPOFOL. [Concomitant]
     Active Substance: PROPOFOL
     Dosage: STRENGTH: 10 MG/ 10 ML (20 ML)
  8. LISINOPRIL. [Concomitant]
     Active Substance: LISINOPRIL
     Dosage: AS NEEDED
     Route: 048
  9. MACROGOL [Concomitant]
     Active Substance: POLYETHYLENE GLYCOLS
     Dosage: STRENGTH: 4000 ML
  10. ISOSORBIDE MONONITRATE. [Concomitant]
     Active Substance: ISOSORBIDE MONONITRATE
     Route: 048
  11. ISOSORBIDE [Concomitant]
     Active Substance: ISOSORBIDE
     Dosage: STRENGTH: 30 MG
     Route: 048
     Dates: end: 20070618
  12. ZOLPIDEM [Concomitant]
     Active Substance: ZOLPIDEM\ZOLPIDEM TARTRATE
     Dosage: STRENGTH: 5 MG
  13. PANTOPRAZOLE [Concomitant]
     Active Substance: PANTOPRAZOLE SODIUM
     Dosage: STRENGTH: 40 MG
  14. SODIUM CHLORIDE. [Concomitant]
     Active Substance: SODIUM CHLORIDE
     Dosage: STRENGTH: 0.9 % 10 ML FLUSH SYG
  15. NIASPAN [Concomitant]
     Active Substance: NIACIN
     Route: 048
  16. CRESTOR [Concomitant]
     Active Substance: ROSUVASTATIN CALCIUM
     Route: 048
  17. PLAVIX [Suspect]
     Active Substance: CLOPIDOGREL BISULFATE
     Indication: ARTERIAL OCCLUSIVE DISEASE
     Route: 048
     Dates: start: 200410

REACTIONS (6)
  - Chest discomfort [Unknown]
  - Arteriosclerosis coronary artery [Unknown]
  - Haematoma [Unknown]
  - Hypertension [Unknown]
  - Ecchymosis [Unknown]
  - Gastrointestinal haemorrhage [Unknown]
